FAERS Safety Report 6825845-X (Version None)
Quarter: 2010Q3

REPORT INFORMATION
  Report Type: 
  Country: None (occurrence: None)
  Receive Date: 20100707
  Receipt Date: 20100707
  Transmission Date: 20110219
  Serious: Yes (Hospitalization)
  Sender: FDA-Public Use
  Company Number: None

PATIENT
  Age: 49 Year
  Sex: Female
  Weight: 60 kg

DRUGS (11)
  1. CAPECITABINE [Suspect]
     Indication: BREAST CANCER
     Dosage: 1000MG BID X 14 DAYS THEN 1 K. OFF PO
     Route: 048
     Dates: start: 20100402, end: 20100415
  2. CAPECITABINE [Suspect]
     Indication: BREAST CANCER
     Dosage: 1000MG BID X 14 DAYS THEN 1 K. OFF PO
     Route: 048
     Dates: start: 20100422, end: 20100505
  3. CAPECITABINE [Suspect]
     Indication: BREAST CANCER
     Dosage: 1000MG BID X 14 DAYS THEN 1 K. OFF PO
     Route: 048
     Dates: start: 20100603, end: 20100616
  4. GEMCITABINE [Suspect]
     Indication: BREAST CANCER
     Dosage: 3214 MG Q21 DAYS IV
     Route: 042
     Dates: start: 20100402
  5. GEMCITABINE [Suspect]
     Indication: BREAST CANCER
     Dosage: 3214 MG Q21 DAYS IV
     Route: 042
     Dates: start: 20100422
  6. GEMCITABINE [Suspect]
     Indication: BREAST CANCER
     Dosage: 3214 MG Q21 DAYS IV
     Route: 042
     Dates: start: 20100513
  7. GEMCITABINE [Suspect]
     Indication: BREAST CANCER
     Dosage: 3214 MG Q21 DAYS IV
     Route: 042
     Dates: start: 20100603
  8. AVASTIN [Suspect]
     Indication: BREAST DISORDER
     Dosage: 905 MG Q 21 DAYS IV
     Route: 042
     Dates: start: 20100402
  9. AVASTIN [Suspect]
     Indication: BREAST DISORDER
     Dosage: 905 MG Q 21 DAYS IV
     Route: 042
     Dates: start: 20100422
  10. AVASTIN [Suspect]
     Indication: BREAST DISORDER
     Dosage: 905 MG Q 21 DAYS IV
     Route: 042
     Dates: start: 20100513
  11. AVASTIN [Suspect]
     Indication: BREAST DISORDER
     Dosage: 905 MG Q 21 DAYS IV
     Route: 042
     Dates: start: 20100603

REACTIONS (12)
  - ABDOMINAL PAIN [None]
  - DEHYDRATION [None]
  - DIZZINESS [None]
  - ERYTHEMA [None]
  - FLUID INTAKE REDUCED [None]
  - HYPOPHAGIA [None]
  - OEDEMA PERIPHERAL [None]
  - PAIN [None]
  - SKIN DISORDER [None]
  - SKIN HYPERPIGMENTATION [None]
  - SKIN TOXICITY [None]
  - SWELLING [None]
